FAERS Safety Report 5680846-2 (Version None)
Quarter: 2008Q1

REPORT INFORMATION
  Report Type: 
  Country: None (occurrence: None)
  Receive Date: 20080325
  Receipt Date: 20080312
  Transmission Date: 20080703
  Serious: Yes (Other)
  Sender: FDA-Public Use
  Company Number: 2008AL001546

PATIENT
  Age: 35 Year
  Sex: Male
  Weight: 90.9 kg

DRUGS (6)
  1. GABAPENTIN [Suspect]
     Indication: CERVICAL SPINAL STENOSIS
     Dosage: 900 MG;TID;PO
     Route: 048
     Dates: start: 20080115
  2. LYRICA [Concomitant]
  3. MORPHINE SULFATE [Concomitant]
  4. CITALOPRAM HYDROBROMIDE [Concomitant]
  5. OXYCODONE HCL [Concomitant]
  6. BACLOFEN [Concomitant]

REACTIONS (7)
  - BLOOD PRESSURE INCREASED [None]
  - MUSCLE SPASMS [None]
  - MUSCLE TWITCHING [None]
  - MYALGIA [None]
  - NAUSEA [None]
  - PAIN IN EXTREMITY [None]
  - VOMITING [None]
